FAERS Safety Report 14720403 (Version 1)
Quarter: 2018Q2

REPORT INFORMATION
  Report Type: Spontaneous
  Country: DE (occurrence: DE)
  Receive Date: 20180405
  Receipt Date: 20180405
  Transmission Date: 20180711
  Serious: Yes (Hospitalization, Other)
  Sender: FDA-Public Use
  Company Number: DE-MYLANLABS-2018M1020856

PATIENT
  Sex: Male

DRUGS (18)
  1. OPIPRAMOL [Concomitant]
     Active Substance: OPIPRAMOL
     Indication: PRODUCT USED FOR UNKNOWN INDICATION
     Dosage: 50 MG, UNK
     Dates: end: 20160601
  2. BUDES [Concomitant]
     Active Substance: BUDESONIDE
     Indication: PRODUCT USED FOR UNKNOWN INDICATION
     Dosage: 2 DF, QD
  3. HUMIRA [Suspect]
     Active Substance: ADALIMUMAB
     Indication: PSORIASIS
     Route: 058
  4. MAGNESIUM                          /00082501/ [Concomitant]
     Active Substance: ALUMINUM HYDROXIDE\MAGNESIUM HYDROXIDE
     Indication: PRODUCT USED FOR UNKNOWN INDICATION
  5. VENLAFAXINE [Suspect]
     Active Substance: VENLAFAXINE HYDROCHLORIDE
     Indication: PRODUCT USED FOR UNKNOWN INDICATION
     Route: 065
  6. FLUTIFORM [Concomitant]
     Active Substance: FLUTICASONE PROPIONATE\FORMOTEROL FUMARATE
     Indication: PRODUCT USED FOR UNKNOWN INDICATION
     Dosage: 4 DF, QD
  7. ATORVASTATIN [Concomitant]
     Active Substance: ATORVASTATIN
     Indication: PRODUCT USED FOR UNKNOWN INDICATION
     Dosage: 40 MG, QD
  8. LORATADINE. [Concomitant]
     Active Substance: LORATADINE
     Indication: PRODUCT USED FOR UNKNOWN INDICATION
  9. MAGNESIUM [Concomitant]
     Active Substance: MAGNESIUM
     Indication: PRODUCT USED FOR UNKNOWN INDICATION
     Dosage: 75 MG, QD
  10. HUMIRA [Suspect]
     Active Substance: ADALIMUMAB
     Dosage: UNK
  11. SILICA [Concomitant]
     Active Substance: SILICON DIOXIDE
     Indication: PRODUCT USED FOR UNKNOWN INDICATION
     Dosage: 2 DF, QD
  12. VITAMIN B12 [Concomitant]
     Active Substance: CYANOCOBALAMIN
     Indication: PRODUCT USED FOR UNKNOWN INDICATION
  13. ASPIRIN. [Concomitant]
     Active Substance: ASPIRIN
     Indication: PRODUCT USED FOR UNKNOWN INDICATION
     Dosage: 100 MG, QD
  14. HUMIRA [Suspect]
     Active Substance: ADALIMUMAB
     Dosage: 40 MG, UNK
     Route: 058
  15. ATORVASTATINE                      /01326101/ [Concomitant]
     Active Substance: ATORVASTATIN
     Indication: PRODUCT USED FOR UNKNOWN INDICATION
  16. DICLOFENAC [Concomitant]
     Active Substance: DICLOFENAC
     Indication: PRODUCT USED FOR UNKNOWN INDICATION
  17. ATORVASTATIN [Concomitant]
     Active Substance: ATORVASTATIN
     Dosage: 20 MG, QD
     Dates: end: 20160601
  18. SIMETHICONE (DIMETHICONE) [Concomitant]
     Active Substance: DIMETHICONE
     Indication: PRODUCT USED FOR UNKNOWN INDICATION
     Dates: end: 20160601

REACTIONS (33)
  - Visual evoked potentials abnormal [Unknown]
  - CSF protein increased [Unknown]
  - Spondylolisthesis [Unknown]
  - Fatigue [Not Recovered/Not Resolved]
  - Eosinophil count increased [Unknown]
  - Disturbance in attention [Not Recovered/Not Resolved]
  - Double stranded DNA antibody positive [Unknown]
  - Blood creatine phosphokinase increased [Unknown]
  - Alanine aminotransferase increased [Unknown]
  - Blood cholesterol increased [Unknown]
  - Spinal osteoarthritis [Unknown]
  - Nuclear magnetic resonance imaging spinal abnormal [Unknown]
  - Psoriasis [Not Recovered/Not Resolved]
  - Infection susceptibility increased [Recovered/Resolved]
  - Cognitive disorder [Unknown]
  - Tension headache [Not Recovered/Not Resolved]
  - Peripheral sensory neuropathy [Unknown]
  - Cerebral microangiopathy [Not Recovered/Not Resolved]
  - Physical examination abnormal [Unknown]
  - Leukoencephalopathy [Not Recovered/Not Resolved]
  - Depressed mood [Not Recovered/Not Resolved]
  - Central nervous system inflammation [Unknown]
  - Creatinine renal clearance increased [Unknown]
  - Depression [Unknown]
  - Intervertebral disc protrusion [Unknown]
  - Saccadic eye movement [Unknown]
  - Lipid metabolism disorder [Unknown]
  - Chest X-ray abnormal [Unknown]
  - Bacterial test positive [Unknown]
  - White matter lesion [Unknown]
  - Drug ineffective [Not Recovered/Not Resolved]
  - Cerebral autosomal dominant arteriopathy with subcortical infarcts and leukoencephalopathy [Unknown]
  - Ultrasound skull abnormal [Unknown]

NARRATIVE: CASE EVENT DATE: 20150101
